FAERS Safety Report 8493832-4 (Version None)
Quarter: 2012Q3

REPORT INFORMATION
  Report Type: 
  Country: None (occurrence: None)
  Receive Date: 20120706
  Receipt Date: 20120629
  Transmission Date: 20120928
  Serious: Yes (Other)
  Sender: FDA-Public Use
  Company Number: CA-ABBOTT-12P-028-0942743-00

PATIENT
  Sex: Female

DRUGS (1)
  1. HUMIRA [Suspect]
     Indication: CROHN'S DISEASE
     Route: 058
     Dates: start: 20080601

REACTIONS (4)
  - GOITRE [None]
  - THYROID NEOPLASM [None]
  - INTESTINAL MUCOSAL HYPERTROPHY [None]
  - THYROID CANCER [None]
